FAERS Safety Report 11333930 (Version 3)
Quarter: 2016Q1

REPORT INFORMATION
  Report Type: Spontaneous
  Country: US (occurrence: US)
  Receive Date: 20150803
  Receipt Date: 20160301
  Transmission Date: 20160525
  Serious: Yes (Life-Threatening, Hospitalization, Other)
  Sender: FDA-Public Use
  Company Number: US-PFIZER INC-2015257109

PATIENT
  Age: 75 Year
  Sex: Female
  Weight: 57 kg

DRUGS (3)
  1. CELEBREX [Suspect]
     Active Substance: CELECOXIB
     Indication: COMPLEX REGIONAL PAIN SYNDROME
     Dosage: 200 MG, 2X/DAY
     Route: 048
     Dates: start: 1991
  2. SUMATRIPTAN. [Concomitant]
     Active Substance: SUMATRIPTAN
     Dosage: 25 MG, UNK
  3. PREMARIN [Suspect]
     Active Substance: ESTROGENS, CONJUGATED
     Indication: GENITAL ATROPHY
     Dosage: FILLED THE SYRINGE TO THE 1.0 LINE AND USED IT TWICE A WEEK INSERTED VAGINALLY
     Route: 067
     Dates: end: 2014

REACTIONS (7)
  - Acute respiratory distress syndrome [Unknown]
  - Sick building syndrome [Not Recovered/Not Resolved]
  - Skin cancer [Recovered/Resolved]
  - Malignant neoplasm of eye [Unknown]
  - Malaise [Unknown]
  - Respiratory arrest [Unknown]
  - Asthma [Not Recovered/Not Resolved]

NARRATIVE: CASE EVENT DATE: 2014
